FAERS Safety Report 5477815-4 (Version None)
Quarter: 2007Q4

REPORT INFORMATION
  Report Type: 
  Country: None (occurrence: None)
  Receive Date: 20071004
  Receipt Date: 20071001
  Transmission Date: 20080405
  Serious: Yes (Death, Hospitalization)
  Sender: FDA-Public Use
  Company Number: MX-GILEAD-2007-0013613

PATIENT
  Sex: Female
  Weight: 50 kg

DRUGS (4)
  1. TRUVADA [Suspect]
     Indication: HIV INFECTION
     Route: 048
     Dates: start: 20070806
  2. TRUVADA [Suspect]
     Indication: ACQUIRED IMMUNODEFICIENCY SYNDROME
  3. TRIMETHOPRIM + SULFAMETHOXAZOLE [Concomitant]
     Dates: start: 20070806
  4. BUTILHIOSCINE [Concomitant]
     Dates: start: 20070806

REACTIONS (2)
  - ABDOMINAL PAIN [None]
  - INTESTINAL OBSTRUCTION [None]
